FAERS Safety Report 8321754-8 (Version None)
Quarter: 2012Q2

REPORT INFORMATION
  Report Type: 
  Country: None (occurrence: None)
  Receive Date: 20120430
  Receipt Date: 20091117
  Transmission Date: 20120825
  Serious: No
  Sender: FDA-Public Use
  Company Number: US-TEVA-2009027180

PATIENT
  Sex: Female
  Weight: 113.5 kg

DRUGS (7)
  1. EFFEXOR XR [Concomitant]
  2. METOPROLOL TARTRATE [Concomitant]
     Dates: start: 20030101
  3. LAMICTAL [Concomitant]
     Dates: start: 20080101
  4. NUVIGIL [Suspect]
     Indication: ASTHENIA
     Route: 048
     Dates: start: 20091001, end: 20091001
  5. NIFEDIPINE [Concomitant]
     Dates: start: 20060101
  6. ESTRADIOL [Concomitant]
     Dates: start: 20090901
  7. WELLBUTRIN [Concomitant]
     Dates: start: 20070101

REACTIONS (2)
  - DRUG INEFFECTIVE FOR UNAPPROVED INDICATION [None]
  - THERAPEUTIC RESPONSE UNEXPECTED [None]
